FAERS Safety Report 6044855-6 (Version None)
Quarter: 2009Q1

REPORT INFORMATION
  Report Type: 
  Country: None (occurrence: None)
  Receive Date: 20090121
  Receipt Date: 20090109
  Transmission Date: 20090719
  Serious: Yes (Hospitalization, Other)
  Sender: FDA-Public Use
  Company Number: US-CELGENEUS-163-20785-08121000

PATIENT
  Sex: Male
  Weight: 74.91 kg

DRUGS (5)
  1. THALOMID [Suspect]
     Indication: GASTROINTESTINAL ARTERIOVENOUS MALFORMATION
     Route: 048
     Dates: start: 20080708, end: 20081209
  2. GLUCOPHAGE [Concomitant]
     Route: 048
  3. PRINIVIL [Concomitant]
     Indication: HYPERTENSION
     Route: 048
  4. ZOCOR [Concomitant]
     Route: 065
  5. PREVACID [Concomitant]
     Route: 065

REACTIONS (1)
  - GASTROINTESTINAL HAEMORRHAGE [None]
